FAERS Safety Report 10045150 (Version 1)
Quarter: 2014Q1

REPORT INFORMATION
  Report Type: Spontaneous
  Country: US (occurrence: US)
  Receive Date: 20140328
  Receipt Date: 20140328
  Transmission Date: 20141002
  Serious: Yes (Hospitalization)
  Sender: FDA-Public Use
  Company Number: US-ROXANE LABORATORIES, INC.-2014-RO-00472RO

PATIENT
  Age: 60 Year
  Sex: Female
  Weight: 49 kg

DRUGS (4)
  1. PREDNISONE [Suspect]
     Indication: PRODUCT USED FOR UNKNOWN INDICATION
     Dosage: 50 MG
     Route: 048
     Dates: start: 20120515
  2. OXYGEN THERAPY [Concomitant]
     Indication: IDIOPATHIC PULMONARY FIBROSIS
     Route: 065
     Dates: start: 20120424
  3. N-ACETYLCYSTEINE NAC [Concomitant]
     Indication: IDIOPATHIC PULMONARY FIBROSIS
     Dosage: 1800 MG
     Route: 065
     Dates: start: 20120517
  4. COMBINED ANTIBIOTIC PROTOCOL [Concomitant]
     Indication: PRODUCT USED FOR UNKNOWN INDICATION
     Route: 065

REACTIONS (2)
  - Intestinal obstruction [Recovered/Resolved]
  - Sepsis [Recovered/Resolved]
